FAERS Safety Report 14223612 (Version 1)
Quarter: 2017Q4

REPORT INFORMATION
  Report Type: Spontaneous
  Country: US (occurrence: US)
  Receive Date: 20171124
  Receipt Date: 20171124
  Transmission Date: 20180321
  Serious: No
  Sender: FDA-Public Use
  Company Number: US-GLENMARK PHARMACEUTICALS-2017GMK028728

PATIENT

DRUGS (2)
  1. MUPIROCIN. [Suspect]
     Active Substance: MUPIROCIN
     Dosage: UNK, BID (MORNING AND AFTERNOON)
     Route: 061
  2. MUPIROCIN. [Suspect]
     Active Substance: MUPIROCIN
     Indication: SKIN DISORDER
     Dosage: UNK, TID
     Route: 061

REACTIONS (5)
  - Accidental exposure to product [Unknown]
  - Intentional product use issue [Unknown]
  - Eye irritation [Recovering/Resolving]
  - Ocular discomfort [Recovering/Resolving]
  - Ocular hyperaemia [Recovering/Resolving]
